FAERS Safety Report 18417761 (Version 2)
Quarter: 2020Q4

REPORT INFORMATION
  Report Type: Spontaneous
  Country: US (occurrence: US)
  Receive Date: 20201023
  Receipt Date: 20201202
  Transmission Date: 20210114
  Serious: Yes (Other)
  Sender: FDA-Public Use
  Company Number: US-DRREDDYS-USA/USA/20/0128143

PATIENT
  Age: 48 Year
  Sex: Male

DRUGS (1)
  1. AZACITIDINE. [Suspect]
     Active Substance: AZACITIDINE
     Indication: MYELOSUPPRESSION
     Dosage: FOR 5 DAYS, IN 11 CYCLE TOTAL
     Route: 042

REACTIONS (2)
  - Cytopenia [Recovering/Resolving]
  - Off label use [Unknown]
